FAERS Safety Report 25622226 (Version 1)
Quarter: 2025Q3

REPORT INFORMATION
  Report Type: Spontaneous
  Country: CN (occurrence: CN)
  Receive Date: 20250730
  Receipt Date: 20250730
  Transmission Date: 20251021
  Serious: Yes (Other)
  Sender: BEIGENE
  Company Number: CN-BEIGENE-BGN-2025-012109

PATIENT
  Age: 76 Year
  Weight: 53 kg

DRUGS (16)
  1. TISLELIZUMAB [Suspect]
     Active Substance: TISLELIZUMAB
     Indication: Lung neoplasm malignant
  2. TISLELIZUMAB [Suspect]
     Active Substance: TISLELIZUMAB
  3. TISLELIZUMAB [Suspect]
     Active Substance: TISLELIZUMAB
     Route: 041
  4. TISLELIZUMAB [Suspect]
     Active Substance: TISLELIZUMAB
     Route: 041
  5. TISLELIZUMAB [Suspect]
     Active Substance: TISLELIZUMAB
  6. TISLELIZUMAB [Suspect]
     Active Substance: TISLELIZUMAB
  7. TISLELIZUMAB [Suspect]
     Active Substance: TISLELIZUMAB
     Route: 041
  8. TISLELIZUMAB [Suspect]
     Active Substance: TISLELIZUMAB
     Route: 041
  9. ETOPOSIDE [Concomitant]
     Active Substance: ETOPOSIDE
     Indication: Lung neoplasm malignant
     Dosage: 0.15 GRAM, QD*3D
  10. ETOPOSIDE [Concomitant]
     Active Substance: ETOPOSIDE
     Dosage: 0.15 GRAM, QD*3D
     Route: 041
  11. ETOPOSIDE [Concomitant]
     Active Substance: ETOPOSIDE
     Dosage: 0.15 GRAM, QD*3D
  12. ETOPOSIDE [Concomitant]
     Active Substance: ETOPOSIDE
     Dosage: 0.15 GRAM, QD*3D
     Route: 041
  13. CARBOPLATIN [Concomitant]
     Active Substance: CARBOPLATIN
     Indication: Lung neoplasm malignant
  14. CARBOPLATIN [Concomitant]
     Active Substance: CARBOPLATIN
     Route: 041
  15. CARBOPLATIN [Concomitant]
     Active Substance: CARBOPLATIN
  16. CARBOPLATIN [Concomitant]
     Active Substance: CARBOPLATIN
     Route: 041

REACTIONS (5)
  - Pneumonia [Unknown]
  - Pericardial effusion [Unknown]
  - Pleural effusion [Unknown]
  - Vomiting [Unknown]
  - Diarrhoea [Recovering/Resolving]
